FAERS Safety Report 6840043-1 (Version None)
Quarter: 2010Q3

REPORT INFORMATION
  Report Type: 
  Country: None (occurrence: None)
  Receive Date: 20100714
  Receipt Date: 20100701
  Transmission Date: 20110219
  Serious: Yes (Hospitalization, Other)
  Sender: FDA-Public Use
  Company Number: JP-ROCHE-642268

PATIENT
  Age: 83 Year
  Sex: Male

DRUGS (5)
  1. BEVACIZUMAB [Suspect]
     Route: 031
     Dates: start: 20090213
  2. BEVACIZUMAB [Suspect]
     Route: 031
     Dates: start: 20090323
  3. TRIAMCINOLONE ACETONIDE [Suspect]
     Dosage: ROUTE: POSTERIOR SUBTENON
     Route: 050
     Dates: start: 20090201
  4. RANIBIZUMAB [Suspect]
     Route: 031
     Dates: start: 20090424
  5. RANIBIZUMAB [Suspect]
     Route: 031
     Dates: start: 20090522

REACTIONS (1)
  - CYTOMEGALOVIRUS CHORIORETINITIS [None]
